FAERS Safety Report 21143567 (Version 2)
Quarter: 2022Q3

REPORT INFORMATION
  Report Type: Spontaneous
  Country: US (occurrence: US)
  Receive Date: 20220728
  Receipt Date: 20220810
  Transmission Date: 20221027
  Serious: Yes (Hospitalization)
  Sender: FDA-Public Use
  Company Number: US-TEVA-2022-US-2058007

PATIENT
  Age: 17 Year
  Sex: Male

DRUGS (20)
  1. CARBIDOPA\LEVODOPA [Suspect]
     Active Substance: CARBIDOPA\LEVODOPA
     Indication: Dystonia
     Route: 065
  2. VALPROIC ACID [Suspect]
     Active Substance: VALPROIC ACID
     Indication: Bipolar disorder
     Dosage: 750 MILLIGRAM DAILY;
     Route: 065
  3. VALPROIC ACID [Suspect]
     Active Substance: VALPROIC ACID
     Dosage: EXTENDED RELEASE FORMULATION
     Route: 065
  4. BACLOFEN [Suspect]
     Active Substance: BACLOFEN
     Indication: Dystonia
     Dosage: 437.9 MICROGRAM DAILY;
     Route: 037
     Dates: start: 201606
  5. BACLOFEN [Suspect]
     Active Substance: BACLOFEN
     Dosage: 745.2 MICROGRAM DAILY;
     Route: 037
  6. BACLOFEN [Suspect]
     Active Substance: BACLOFEN
     Dosage: 819.72 MICROGRAM DAILY;
     Route: 037
     Dates: start: 201812
  7. BACLOFEN [Suspect]
     Active Substance: BACLOFEN
     Dosage: 1100 MICROGRAM DAILY;
     Route: 037
     Dates: start: 202001
  8. BACLOFEN [Suspect]
     Active Substance: BACLOFEN
     Dosage: 100 MICROGRAM DAILY;
     Route: 037
  9. BACLOFEN [Suspect]
     Active Substance: BACLOFEN
     Dosage: 275 MICROGRAM DAILY;
     Route: 037
     Dates: start: 202003
  10. BACLOFEN [Suspect]
     Active Substance: BACLOFEN
     Dosage: 375.4 MICROGRAM DAILY;
     Route: 037
     Dates: start: 202004
  11. BACLOFEN [Suspect]
     Active Substance: BACLOFEN
     Dosage: 230.2 MICROGRAM DAILY;
     Route: 037
  12. BACLOFEN [Suspect]
     Active Substance: BACLOFEN
     Dosage: 253.2 MICROGRAM DAILY;
     Route: 037
  13. BACLOFEN [Suspect]
     Active Substance: BACLOFEN
     Dosage: 278.1 MICROGRAM DAILY;
     Route: 037
  14. BOTULINUM TOXIN NOS [Concomitant]
     Active Substance: BOTULINUM TOXIN NOS
     Indication: Dystonia
     Route: 065
  15. LAMOTRIGINE [Concomitant]
     Active Substance: LAMOTRIGINE
     Indication: Bipolar disorder
     Dosage: 300 MILLIGRAM DAILY;
     Route: 065
  16. LITHIUM [Concomitant]
     Active Substance: LITHIUM
     Indication: Bipolar disorder
     Route: 065
  17. QUETIAPINE [Concomitant]
     Active Substance: QUETIAPINE
     Indication: Bipolar disorder
     Route: 065
  18. CARIPRAZINE [Concomitant]
     Active Substance: CARIPRAZINE
     Indication: Bipolar disorder
     Route: 065
     Dates: start: 202004
  19. DIAZEPAM [Concomitant]
     Active Substance: DIAZEPAM
     Indication: Bipolar disorder
     Dosage: 2 MILLIGRAM DAILY;
     Route: 065
  20. CITALOPRAM [Concomitant]
     Active Substance: CITALOPRAM HYDROBROMIDE
     Indication: Bipolar disorder
     Dosage: EVERY NIGHT AT BEDTIME., 10 MG
     Route: 065

REACTIONS (3)
  - Behaviour disorder [Recovered/Resolved]
  - Depressed mood [Recovered/Resolved]
  - Tremor [Recovered/Resolved]
